FAERS Safety Report 18221818 (Version 1)
Quarter: 2020Q3

REPORT INFORMATION
  Report Type: Spontaneous
  Country: US (occurrence: US)
  Receive Date: 20200902
  Receipt Date: 20200902
  Transmission Date: 20201103
  Serious: Yes (Death)
  Sender: FDA-Public Use
  Company Number: None

PATIENT
  Age: 77 Year
  Sex: Male
  Weight: 82 kg

DRUGS (1)
  1. REMDESIVIR (EUA) [Suspect]
     Active Substance: REMDESIVIR
     Indication: COVID-19
     Route: 042
     Dates: start: 20200625, end: 20200704

REACTIONS (3)
  - Blood creatinine increased [None]
  - Respiratory depression [None]
  - Disease progression [None]

NARRATIVE: CASE EVENT DATE: 20200710
